FAERS Safety Report 8425611-8 (Version None)
Quarter: 2012Q2

REPORT INFORMATION
  Report Type: 
  Country: None (occurrence: None)
  Receive Date: 20120531
  Receipt Date: 20120515
  Transmission Date: 20120825
  Serious: Yes (Hospitalization)
  Sender: FDA-Public Use
  Company Number: 2012SP027074

PATIENT
  Sex: Female

DRUGS (3)
  1. REBETOL [Suspect]
     Indication: HEPATITIS C
  2. VIRAFERONPEG [Suspect]
     Indication: HEPATITIS C
  3. VICTRELIS [Suspect]
     Indication: HEPATITIS C
     Dates: start: 20120201

REACTIONS (2)
  - DERMATITIS EXFOLIATIVE [None]
  - INFECTION [None]
